FAERS Safety Report 7978746-8 (Version None)
Quarter: 2011Q4

REPORT INFORMATION
  Report Type: 
  Country: None (occurrence: None)
  Receive Date: 20111214
  Receipt Date: 20111209
  Transmission Date: 20120403
  Serious: Yes (Other)
  Sender: FDA-Public Use
  Company Number: BR-PFIZER INC-2011295920

PATIENT
  Age: 58 Year
  Sex: Female
  Weight: 55 kg

DRUGS (10)
  1. VARENICLINE TARTRATE [Suspect]
     Dosage: 1 MG, 2X/DAY
     Route: 048
     Dates: start: 20110101, end: 20111203
  2. DIAZEPAM [Concomitant]
     Indication: MOOD ALTERED
     Dosage: 10 MG, AS NEEDED
     Dates: start: 19810101
  3. LOSARTAN [Concomitant]
     Indication: HYPERTENSION
     Dosage: 50 MG, 2X/DAY
  4. ASPIRIN [Concomitant]
     Indication: CARDIAC DISORDER
     Dosage: 100 MG, 1X/DAY
  5. VARENICLINE TARTRATE [Suspect]
     Indication: SMOKING CESSATION THERAPY
     Dosage: UNK
     Route: 048
     Dates: start: 20111122, end: 20110101
  6. VARENICLINE TARTRATE [Suspect]
     Dosage: 0.5 MG, 2X/DAY
     Route: 048
     Dates: start: 20110101, end: 20110101
  7. CLOPIDOGREL [Concomitant]
     Indication: HYPERTENSION
     Dosage: 75 MG, 1X/DAY
  8. HYDROCHLOROTHIAZIDE [Concomitant]
     Indication: HYPERTENSION
     Dosage: 25 MG, 1X/DAY
  9. ATENOLOL [Concomitant]
     Indication: CARDIAC DISORDER
     Dosage: 50 MG, 2X/DAY
  10. SIMVASTATIN [Concomitant]
     Indication: BLOOD CHOLESTEROL INCREASED
     Dosage: 40 MG, 1X/DAY
     Dates: start: 20060101

REACTIONS (8)
  - INGUINAL MASS [None]
  - ABDOMINAL DISCOMFORT [None]
  - THROAT IRRITATION [None]
  - GLOSSODYNIA [None]
  - DYSPEPSIA [None]
  - PYREXIA [None]
  - DYSPHONIA [None]
  - TONGUE DISORDER [None]
